FAERS Safety Report 10575681 (Version 2)
Quarter: 2014Q4

REPORT INFORMATION
  Report Type: Spontaneous
  Country: US (occurrence: US)
  Receive Date: 20141111
  Receipt Date: 20141126
  Transmission Date: 20150529
  Serious: No
  Sender: FDA-Public Use
  Company Number: US-PFIZER INC-2014307649

PATIENT
  Age: 64 Year
  Sex: Female

DRUGS (6)
  1. SERTRALINE [Concomitant]
     Active Substance: SERTRALINE HYDROCHLORIDE
     Dosage: 100 MG, UNK
     Dates: start: 201404
  2. TAGAMET [Concomitant]
     Active Substance: CIMETIDINE
     Dosage: 400 MG, UNK
     Dates: start: 2000
  3. LEVOTHYROXINE [Concomitant]
     Active Substance: LEVOTHYROXINE
     Dosage: 125 ?G, UNK
     Dates: start: 1978
  4. CELEBREX [Suspect]
     Active Substance: CELECOXIB
     Indication: BACK PAIN
  5. HYDROCODONE [Concomitant]
     Active Substance: HYDROCODONE
     Dosage: 7.5-325
     Dates: start: 2010
  6. CELEBREX [Suspect]
     Active Substance: CELECOXIB
     Indication: ARTHRALGIA
     Dosage: 200 MG, ONCE A DAY
     Dates: start: 201408

REACTIONS (2)
  - Arthropathy [Not Recovered/Not Resolved]
  - Activities of daily living impaired [Not Recovered/Not Resolved]
